FAERS Safety Report 17072032 (Version 1)
Quarter: 2019Q4

REPORT INFORMATION
  Report Type: Spontaneous
  Country: US (occurrence: US)
  Receive Date: 20191123
  Receipt Date: 20191123
  Transmission Date: 20200122
  Serious: Yes (Life-Threatening, Hospitalization, Disabling)
  Sender: FDA-Public Use
  Company Number: None

PATIENT
  Age: 60 Year
  Sex: Male
  Weight: 85.95 kg

DRUGS (2)
  1. MULTI VITAMIN [Concomitant]
     Active Substance: VITAMINS
  2. CHANTIX [Suspect]
     Active Substance: VARENICLINE TARTRATE
     Indication: SMOKING CESSATION THERAPY
     Dosage: ?          QUANTITY:1 TABLET(S);?
     Route: 048
     Dates: start: 20190830, end: 20190930

REACTIONS (10)
  - Face injury [None]
  - Blood glucose increased [None]
  - Dizziness [None]
  - Neck pain [None]
  - Weight decreased [None]
  - Thirst [None]
  - Vision blurred [None]
  - Syncope [None]
  - Musculoskeletal pain [None]
  - Skin abrasion [None]

NARRATIVE: CASE EVENT DATE: 20191118
